APPROVED DRUG PRODUCT: FLUOROURACIL
Active Ingredient: FLUOROURACIL
Strength: 5GM/100ML (50MG/ML)
Dosage Form/Route: INJECTABLE;INJECTION
Application: A217676 | Product #001 | TE Code: AP
Applicant: ALEMBIC PHARMACEUTICALS LTD
Approved: Oct 18, 2023 | RLD: No | RS: No | Type: RX